FAERS Safety Report 11707085 (Version 1)
Quarter: 2015Q4

REPORT INFORMATION
  Report Type: Spontaneous
  Country: US (occurrence: US)
  Receive Date: 20151104
  Receipt Date: 20151104
  Transmission Date: 20160304
  Serious: No
  Sender: FDA-Public Use
  Company Number: US-ELI_LILLY_AND_COMPANY-US201101000610

PATIENT
  Sex: Female

DRUGS (5)
  1. STATIN                             /00084401/ [Concomitant]
  2. ACTONEL [Concomitant]
     Active Substance: RISEDRONATE SODIUM
  3. FORTEO [Suspect]
     Active Substance: TERIPARATIDE
     Dosage: 20 UG, QD
     Dates: start: 20110319, end: 20110323
  4. FORTEO [Suspect]
     Active Substance: TERIPARATIDE
     Indication: OSTEOPOROSIS
     Dosage: 20 UG, DAILY (1/D)
     Dates: start: 20101220, end: 20110201
  5. FORTEO [Suspect]
     Active Substance: TERIPARATIDE
     Dosage: 20 UG, QD
     Dates: start: 20110410

REACTIONS (23)
  - Malaise [Unknown]
  - Medication error [Unknown]
  - Nausea [Recovered/Resolved]
  - Sinusitis [Recovered/Resolved]
  - Arthralgia [Unknown]
  - Injection site bruising [Unknown]
  - Dizziness [Unknown]
  - Fatigue [Unknown]
  - Abdominal pain upper [Recovered/Resolved]
  - Headache [Recovering/Resolving]
  - Pain in extremity [Recovered/Resolved]
  - Nasal congestion [Unknown]
  - Flank pain [Unknown]
  - Musculoskeletal pain [Recovered/Resolved]
  - Back pain [Recovered/Resolved]
  - Arthritis [Unknown]
  - Pain [Unknown]
  - Sinus disorder [Unknown]
  - Pain in extremity [Unknown]
  - Feeling abnormal [Unknown]
  - Hot flush [Unknown]
  - Back pain [Recovering/Resolving]
  - Influenza like illness [Unknown]
